FAERS Safety Report 9264418 (Version 1)
Quarter: 2013Q2

REPORT INFORMATION
  Report Type: Spontaneous
  Country: US (occurrence: US)
  Receive Date: 20130430
  Receipt Date: 20130430
  Transmission Date: 20140414
  Serious: No
  Sender: FDA-Public Use
  Company Number: US-009507513-1304USA017671

PATIENT
  Age: 32 Year
  Sex: Male
  Weight: 120.18 kg

DRUGS (4)
  1. CLARITIN REDITABS [Suspect]
     Indication: NASAL CONGESTION
     Dosage: 10 MG, PRN
     Route: 048
  2. CLARITIN REDITABS [Suspect]
     Dosage: 20 MG, ONCE
     Route: 048
     Dates: start: 20130419
  3. CLARITIN REDITABS [Suspect]
     Dosage: 10 MG, ONCE
     Route: 048
     Dates: start: 20130419
  4. GLEEVEC [Concomitant]
     Indication: PRODUCT USED FOR UNKNOWN INDICATION
     Dosage: UNK, UNKNOWN

REACTIONS (1)
  - Overdose [Unknown]
